FAERS Safety Report 6267747-6 (Version None)
Quarter: 2009Q3

REPORT INFORMATION
  Report Type: 
  Country: None (occurrence: None)
  Receive Date: 20090714
  Receipt Date: 20090630
  Transmission Date: 20100115
  Serious: Yes (Other)
  Sender: FDA-Public Use
  Company Number: US-ROCHE-596596

PATIENT
  Sex: Female
  Weight: 82.6 kg

DRUGS (7)
  1. PEG-INTERFERON A-2A (RO 25-8310) [Suspect]
     Indication: HEPATITIS C
     Dosage: FORM: PREFILLED SYRINGE, STRENGTH: 180 MCG/ 5 ML
     Route: 058
     Dates: start: 20080722
  2. PEG-INTERFERON A-2A (RO 25-8310) [Suspect]
     Dosage: DOSE DECREASED
     Route: 058
     Dates: start: 20090201, end: 20090608
  3. RIBAVIRIN (NON-ROCHE) [Suspect]
     Indication: HEPATITIS C
     Dosage: DOSE: DIVIDED DOSES
     Route: 048
     Dates: start: 20080722
  4. RIBAVIRIN (NON-ROCHE) [Suspect]
     Dosage: DOSAGE LOWERED
     Route: 048
     Dates: start: 20090201, end: 20090608
  5. ZOLOFT [Concomitant]
     Indication: DEPRESSION
     Dosage: OTHER INDICATION REPORTED AS: ANXIETY
     Route: 048
  6. NEXIUM [Concomitant]
     Route: 048
  7. PHENERGAN [Concomitant]
     Indication: NAUSEA
     Route: 048

REACTIONS (12)
  - ASTHENIA [None]
  - CONTUSION [None]
  - CYSTITIS [None]
  - DYSPNOEA [None]
  - HAEMOGLOBIN DECREASED [None]
  - NON-CARDIAC CHEST PAIN [None]
  - PAIN [None]
  - PROTEINURIA [None]
  - RED BLOOD CELL COUNT DECREASED [None]
  - RENAL DISORDER [None]
  - WHITE BLOOD CELL COUNT DECREASED [None]
  - YAWNING [None]
